FAERS Safety Report 5491606-X (Version None)
Quarter: 2007Q4

REPORT INFORMATION
  Report Type: 
  Country: None (occurrence: None)
  Receive Date: 20071019
  Receipt Date: 20071019
  Transmission Date: 20080405
  Serious: Yes (Other)
  Sender: FDA-Public Use
  Company Number: None

PATIENT
  Age: 52 Year
  Sex: Male

DRUGS (11)
  1. CEFUROXIME [Suspect]
     Dates: start: 20060106, end: 20060116
  2. NEURONTIN [Concomitant]
  3. INSULIN [Concomitant]
  4. ALBUTEROL [Concomitant]
  5. ADVAIR DISKUS 100/50 [Concomitant]
  6. LISINOPRIL WITH HYDROCHLOROTHIAZIDE [Concomitant]
  7. FLEXERIL [Concomitant]
  8. ALLEGRO [Concomitant]
  9. CLARITIN [Concomitant]
  10. CHOLESTYRAMINE [Concomitant]
  11. URSODIOL [Concomitant]

REACTIONS (11)
  - AMMONIA INCREASED [None]
  - BIOPSY LIVER ABNORMAL [None]
  - CONFUSIONAL STATE [None]
  - DIABETES MELLITUS INADEQUATE CONTROL [None]
  - ERYTHEMA [None]
  - FOLLICULITIS [None]
  - FUNGAL INFECTION [None]
  - INFLAMMATION [None]
  - LIVER INJURY [None]
  - OEDEMA PERIPHERAL [None]
  - SKIN LESION [None]
